FAERS Safety Report 6063105-8 (Version None)
Quarter: 2009Q1

REPORT INFORMATION
  Report Type: 
  Country: None (occurrence: None)
  Receive Date: 20090203
  Receipt Date: 20090129
  Transmission Date: 20090719
  Serious: Yes (Hospitalization)
  Sender: FDA-Public Use
  Company Number: GB-BRISTOL-MYERS SQUIBB COMPANY-14488811

PATIENT
  Age: 47 Year
  Sex: Male

DRUGS (6)
  1. CARBOPLATIN [Suspect]
     Indication: NON-SMALL CELL LUNG CANCER
     Route: 042
     Dates: start: 20081027
  2. PACLITAXEL [Suspect]
     Indication: NON-SMALL CELL LUNG CANCER
     Route: 042
     Dates: start: 20081027
  3. AVASTIN [Suspect]
     Indication: NON-SMALL CELL LUNG CANCER
     Route: 042
     Dates: start: 20081027
  4. DOMPERIDONE [Concomitant]
     Indication: NAUSEA
     Dosage: 1 DOSAGE FORM = 30-60MG.;THERAPY ONGOING
     Dates: start: 20081027
  5. CYCLIZINE [Concomitant]
     Indication: NAUSEA
     Dosage: THERAPY ONGOING
     Dates: start: 20081229
  6. NOZINAN [Concomitant]
     Indication: NAUSEA
     Dosage: THERAPY ONGOING
     Dates: start: 20081229

REACTIONS (2)
  - HEADACHE [None]
  - LOWER RESPIRATORY TRACT INFECTION [None]
